FAERS Safety Report 7998014-8 (Version None)
Quarter: 2011Q4

REPORT INFORMATION
  Report Type: 
  Country: None (occurrence: None)
  Receive Date: 20111221
  Receipt Date: 20101115
  Transmission Date: 20120403
  Serious: No
  Sender: FDA-Public Use
  Company Number: US-GLAXOSMITHKLINE-A0892571A

PATIENT
  Sex: Female

DRUGS (6)
  1. LOVAZA [Suspect]
     Indication: BLOOD TRIGLYCERIDES INCREASED
     Dosage: 1G FOUR TIMES PER DAY
     Route: 048
  2. DIOVAN [Concomitant]
  3. PAROXETINE HCL [Concomitant]
  4. VITAMIN TAB [Concomitant]
  5. AMITRIPTYLINE HCL [Concomitant]
  6. METFORMIN HCL [Concomitant]

REACTIONS (1)
  - FOOD CRAVING [None]
